FAERS Safety Report 4656141-7 (Version None)
Quarter: 2005Q2

REPORT INFORMATION
  Report Type: 
  Country: None (occurrence: None)
  Receive Date: 20050505
  Receipt Date: 20050420
  Transmission Date: 20051028
  Serious: Yes (Death)
  Sender: FDA-Public Use
  Company Number: NL-2005-004728

PATIENT
  Age: 25 Year
  Sex: Male

DRUGS (4)
  1. CAMPATH [Suspect]
     Indication: T-CELL LYMPHOMA
     Dosage: 3 MG, 1 DOSE, SUBCUTANEOUS
     Route: 058
     Dates: start: 20050524, end: 20050524
  2. CYCLOPHOSPHAMIDE W/VINCRISTINE/ PREDNISONE (VINCRISTINE) [Concomitant]
  3. DOXORUBICIN HCL [Concomitant]
  4. ALLOPURINOL [Concomitant]

REACTIONS (4)
  - ACUTE RESPIRATORY DISTRESS SYNDROME [None]
  - BLOOD LACTATE DEHYDROGENASE INCREASED [None]
  - MULTI-ORGAN FAILURE [None]
  - TUMOUR LYSIS SYNDROME [None]
